FAERS Safety Report 9989068 (Version 1)
Quarter: 2014Q1

REPORT INFORMATION
  Report Type: Report from Study
  Country: PR (occurrence: PR)
  Receive Date: 20140310
  Receipt Date: 20140310
  Transmission Date: 20141002
  Serious: No
  Sender: FDA-Public Use
  Company Number: PR-ABBVIE-13P-131-1135680-00

PATIENT
  Age: 58 Year
  Sex: Male
  Weight: 83.54 kg

DRUGS (7)
  1. HUMIRA [Suspect]
     Indication: RHEUMATOID ARTHRITIS
     Route: 058
     Dates: start: 2009, end: 20130730
  2. HUMIRA [Suspect]
     Route: 058
     Dates: start: 20130820
  3. COZAAR [Concomitant]
     Indication: HYPERTENSION
     Route: 048
  4. LYRICA [Concomitant]
     Indication: FIBROMYALGIA
     Route: 048
  5. VITAMIN D [Concomitant]
     Indication: VITAMIN SUPPLEMENTATION
     Route: 048
  6. CITRACAL [Concomitant]
     Indication: MINERAL SUPPLEMENTATION
     Route: 048
  7. OMEGA 3 [Concomitant]
     Indication: NUTRITIONAL SUPPLEMENTATION
     Route: 048

REACTIONS (1)
  - Nasopharyngitis [Recovered/Resolved]
